FAERS Safety Report 5650101-5 (Version None)
Quarter: 2008Q1

REPORT INFORMATION
  Report Type: 
  Country: None (occurrence: None)
  Receive Date: 20080131
  Receipt Date: 20071207
  Transmission Date: 20080703
  Serious: No
  Sender: FDA-Public Use
  Company Number: US200712001753

PATIENT
  Age: 49 Year
  Sex: Female
  Weight: 71.7 kg

DRUGS (4)
  1. BYETTA [Suspect]
     Indication: TYPE 2 DIABETES MELLITUS
     Dosage: 5 UG, 2/D, SUBCUTANEOUS
     Route: 058
     Dates: start: 20071130
  2. GLUCOPHAGE [Concomitant]
  3. DRUG USED IN DIABETES [Concomitant]
  4. ZOMIG [Concomitant]

REACTIONS (9)
  - DECREASED APPETITE [None]
  - DRUG EFFECT DECREASED [None]
  - EARLY SATIETY [None]
  - HUNGER [None]
  - INJECTION SITE BRUISING [None]
  - INJECTION SITE PAIN [None]
  - NASAL INFLAMMATION [None]
  - NAUSEA [None]
  - POSTNASAL DRIP [None]
